FAERS Safety Report 12471315 (Version 2)
Quarter: 2019Q2

REPORT INFORMATION
  Report Type: Spontaneous
  Country: US (occurrence: US)
  Receive Date: 20160616
  Receipt Date: 20190612
  Transmission Date: 20190711
  Serious: No
  Sender: FDA-Public Use
  Company Number: US-PFIZER INC-2016283948

PATIENT
  Age: 83 Year
  Sex: Female

DRUGS (5)
  1. ETHYL ALCOHOL [Suspect]
     Active Substance: ALCOHOL
     Dosage: UNK
  2. CORTISONE ACETATE. [Suspect]
     Active Substance: CORTISONE ACETATE
     Dosage: UNK
  3. ALLEGRA [Suspect]
     Active Substance: FEXOFENADINE HYDROCHLORIDE
     Dosage: UNK
  4. AMOXICILLIN. [Suspect]
     Active Substance: AMOXICILLIN
     Dosage: UNK
  5. CAFFEINE. [Suspect]
     Active Substance: CAFFEINE
     Dosage: UNK

REACTIONS (1)
  - Drug hypersensitivity [Unknown]
